FAERS Safety Report 9899494 (Version 2)
Quarter: 2014Q1

REPORT INFORMATION
  Report Type: Report from Study
  Country: CA (occurrence: CA)
  Receive Date: 20140214
  Receipt Date: 20140226
  Transmission Date: 20141002
  Serious: Yes (Hospitalization, Disabling)
  Sender: FDA-Public Use
  Company Number: CA-ABBVIE-14P-028-1201818-00

PATIENT
  Age: 85 Year
  Sex: Female

DRUGS (4)
  1. MAVIK [Suspect]
     Indication: HYPERTENSION
     Route: 048
  2. GABAPENTIN [Concomitant]
     Indication: ARTHRALGIA
  3. PREDNISONE [Concomitant]
     Indication: ARTHRITIS
  4. JANUMET [Concomitant]
     Indication: DIABETES MELLITUS

REACTIONS (4)
  - Coma [Not Recovered/Not Resolved]
  - Arthralgia [Unknown]
  - Angioedema [Not Recovered/Not Resolved]
  - Arthritis [Unknown]
